FAERS Safety Report 19829681 (Version 2)
Quarter: 2021Q3

REPORT INFORMATION
  Report Type: Other
  Country: TW (occurrence: TW)
  Receive Date: 20210915
  Receipt Date: 20210920
  Transmission Date: 20211014
  Serious: Yes (Death, Hospitalization)
  Sender: FDA-Public Use
  Company Number: TW-ROCHE-2907450

PATIENT

DRUGS (1)
  1. TRASTUZUMAB. [Suspect]
     Active Substance: TRASTUZUMAB
     Indication: BREAST CANCER
     Route: 065

REACTIONS (5)
  - Cardiac failure [Unknown]
  - Ejection fraction decreased [Unknown]
  - Cardiovascular disorder [Fatal]
  - Acute myocardial infarction [Unknown]
  - Ischaemic stroke [Unknown]
